FAERS Safety Report 17858780 (Version 2)
Quarter: 2020Q2

REPORT INFORMATION
  Report Type: Report from Study
  Country: None (occurrence: US)
  Receive Date: 20200604
  Receipt Date: 20200605
  Transmission Date: 20200714
  Serious: No
  Sender: FDA-Public Use
  Company Number: US-US WORLDMEDS, LLC-USW201912-002398

PATIENT
  Age: 77 Year
  Sex: Female

DRUGS (2)
  1. APOKYN [Suspect]
     Active Substance: APOMORPHINE HYDROCHLORIDE
     Indication: PARKINSON^S DISEASE
     Route: 058
     Dates: start: 20191218
  2. APOKYN [Suspect]
     Active Substance: APOMORPHINE HYDROCHLORIDE

REACTIONS (5)
  - Somnolence [Recovered/Resolved]
  - Abdominal pain upper [Recovered/Resolved]
  - Tinnitus [Recovered/Resolved]
  - Flushing [Recovered/Resolved]
  - Nausea [Recovered/Resolved]

NARRATIVE: CASE EVENT DATE: 20191218
